FAERS Safety Report 8417980-X (Version None)
Quarter: 2012Q2

REPORT INFORMATION
  Report Type: 
  Country: None (occurrence: None)
  Receive Date: 20120607
  Receipt Date: 20120528
  Transmission Date: 20120825
  Serious: Yes (Other)
  Sender: FDA-Public Use
  Company Number: BR-JNJFOC-20120600253

PATIENT
  Sex: Male
  Weight: 80 kg

DRUGS (3)
  1. REMICADE [Suspect]
     Route: 042
     Dates: start: 20120401
  2. REMICADE [Suspect]
     Indication: ANKYLOSING SPONDYLITIS
     Route: 042
     Dates: start: 20120508
  3. REMICADE [Suspect]
     Route: 042

REACTIONS (4)
  - PAIN [None]
  - WEIGHT DECREASED [None]
  - CHOLELITHIASIS [None]
  - BLISTER [None]
